FAERS Safety Report 9030529 (Version 2)
Quarter: 2013Q1

REPORT INFORMATION
  Report Type: Spontaneous
  Country: FR (occurrence: FR)
  Receive Date: 20130122
  Receipt Date: 20130131
  Transmission Date: 20140127
  Serious: Yes (Death, Hospitalization)
  Sender: FDA-Public Use
  Company Number: FR-PFIZER INC-2013023213

PATIENT
  Age: 56 Year
  Sex: Male

DRUGS (2)
  1. RAPAMUNE [Suspect]
     Indication: TRANSPLANT REJECTION
     Dosage: UNK
     Route: 048
     Dates: start: 20120717
  2. CELLCEPT [Suspect]
     Indication: LIVER TRANSPLANT
     Dosage: UNK
     Route: 042
     Dates: start: 20120708

REACTIONS (4)
  - Off label use [Fatal]
  - Infection reactivation [Fatal]
  - Varicella [Fatal]
  - Multi-organ failure [Fatal]
